FAERS Safety Report 20282483 (Version 1)
Quarter: 2022Q1

REPORT INFORMATION
  Report Type: Spontaneous
  Country: US (occurrence: None)
  Receive Date: 20220101
  Receipt Date: 20220101
  Transmission Date: 20220423
  Serious: Yes (Death, Life-Threatening, Hospitalization)
  Sender: FDA-Public Use
  Company Number: None

PATIENT
  Age: 41 Year
  Sex: Male
  Weight: 81 kg

DRUGS (1)
  1. OSIMERTINIB [Suspect]
     Active Substance: OSIMERTINIB
     Indication: Non-small cell lung cancer
     Dosage: FREQUENCY : DAILY;?
     Route: 048
     Dates: start: 20191206

REACTIONS (5)
  - Cardiac failure acute [None]
  - Cardiac valve disease [None]
  - Renal impairment [None]
  - Thrombocytopenia [None]
  - Cardiac failure congestive [None]

NARRATIVE: CASE EVENT DATE: 20201225
